FAERS Safety Report 20422114 (Version 5)
Quarter: 2023Q2

REPORT INFORMATION
  Report Type: Spontaneous
  Country: US (occurrence: US)
  Receive Date: 20220203
  Receipt Date: 20230602
  Transmission Date: 20230721
  Serious: No
  Sender: FDA-Public Use
  Company Number: US-BRISTOL-MYERS SQUIBB COMPANY-BMS-2022-013831

PATIENT
  Age: 52 Year
  Sex: Female

DRUGS (2)
  1. ORENCIA [Suspect]
     Active Substance: ABATACEPT
     Indication: Rheumatoid arthritis
     Route: 058
     Dates: start: 202201
  2. ORENCIA [Suspect]
     Active Substance: ABATACEPT
     Dosage: EXPIRATION DATE 28/02/2024
     Route: 058
     Dates: start: 20220104

REACTIONS (5)
  - Arthralgia [Unknown]
  - Condition aggravated [Unknown]
  - Joint swelling [Unknown]
  - Pain [Unknown]
  - Back pain [Unknown]
